FAERS Safety Report 13666114 (Version 1)
Quarter: 2017Q2

REPORT INFORMATION
  Report Type: Spontaneous
  Country: US (occurrence: US)
  Receive Date: 20170619
  Receipt Date: 20170619
  Transmission Date: 20170830
  Serious: Yes (Death, Hospitalization)
  Sender: FDA-Public Use
  Company Number: US-ROCHE-1148810

PATIENT
  Age: 80 Year
  Sex: Male

DRUGS (1)
  1. XELODA [Suspect]
     Active Substance: CAPECITABINE
     Indication: RECTAL CANCER
     Dosage: 3 TABLETS
     Route: 048
     Dates: end: 20090206

REACTIONS (6)
  - Cardiomyopathy [Fatal]
  - Rash macular [Unknown]
  - Insomnia [Unknown]
  - Pneumonia [Fatal]
  - Cardiac disorder [Fatal]
  - Heart rate increased [Recovered/Resolved]

NARRATIVE: CASE EVENT DATE: 20090228
